FAERS Safety Report 23162377 (Version 2)
Quarter: 2023Q4

REPORT INFORMATION
  Report Type: Report from Study
  Country: US (occurrence: US)
  Receive Date: 20231109
  Receipt Date: 20231114
  Transmission Date: 20240109
  Serious: Yes (Other)
  Sender: FDA-Public Use
  Company Number: US-SA-2018SA267326

PATIENT
  Age: 57 Year
  Sex: Male

DRUGS (1)
  1. AGALSIDASE BETA [Suspect]
     Active Substance: AGALSIDASE BETA
     Indication: Fabry^s disease
     Dosage: 90 MG, QOW
     Route: 041
     Dates: start: 20031216

REACTIONS (5)
  - Congenital cystic kidney disease [Unknown]
  - Stress [Unknown]
  - Temperature intolerance [Unknown]
  - Cardiomegaly [Unknown]
  - Feeling hot [Unknown]
